FAERS Safety Report 7321205-6 (Version None)
Quarter: 2011Q1

REPORT INFORMATION
  Report Type: 
  Country: None (occurrence: None)
  Receive Date: 20110228
  Receipt Date: 20110222
  Transmission Date: 20110831
  Serious: Yes (Other)
  Sender: FDA-Public Use
  Company Number: US-JNJFOC-20101005313

PATIENT
  Sex: Female
  Weight: 77.11 kg

DRUGS (3)
  1. PREDNISONE [Suspect]
     Indication: PAIN MANAGEMENT
     Route: 065
  2. LEVAQUIN [Suspect]
     Route: 048
  3. LEVAQUIN [Suspect]
     Indication: SINUSITIS
     Route: 048

REACTIONS (2)
  - TENDON DISORDER [None]
  - ROTATOR CUFF SYNDROME [None]
